FAERS Safety Report 5228680-1 (Version None)
Quarter: 2007Q1

REPORT INFORMATION
  Report Type: 
  Country: None (occurrence: None)
  Receive Date: 20070205
  Receipt Date: 20070131
  Transmission Date: 20070707
  Serious: Yes (Death)
  Sender: FDA-Public Use
  Company Number: JP-JPN-A200700314

PATIENT
  Age: 30 Year
  Sex: Male

DRUGS (2)
  1. PAXIL [Suspect]
     Indication: DEPRESSION
     Dosage: 10MG PER DAY
     Route: 048
     Dates: start: 20050301, end: 20050329
  2. HALOPERIDOL [Concomitant]
     Route: 065

REACTIONS (1)
  - COMPLETED SUICIDE [None]
